FAERS Safety Report 11087813 (Version 1)
Quarter: 2015Q2

REPORT INFORMATION
  Report Type: Report from Study
  Country: DE (occurrence: DE)
  Receive Date: 20150504
  Receipt Date: 20150504
  Transmission Date: 20150821
  Serious: Yes (Hospitalization)
  Sender: FDA-Public Use
  Company Number: DE-ABBVIE-15K-062-1382753-00

PATIENT
  Age: 39 Year
  Sex: Female

DRUGS (2)
  1. HUMIRA [Suspect]
     Active Substance: ADALIMUMAB
     Indication: ANKYLOSING SPONDYLITIS
     Route: 058
     Dates: start: 201012, end: 20150128
  2. HUMIRA [Suspect]
     Active Substance: ADALIMUMAB
     Route: 058
     Dates: start: 20150329

REACTIONS (5)
  - Sinus operation [Recovered/Resolved]
  - Impaired healing [Recovered/Resolved]
  - Nasal septal operation [Recovered/Resolved]
  - Post procedural haemorrhage [Recovered/Resolved]
  - Post procedural haematoma [Recovered/Resolved]

NARRATIVE: CASE EVENT DATE: 201503
